FAERS Safety Report 7490393-3 (Version None)
Quarter: 2011Q2

REPORT INFORMATION
  Report Type: 
  Country: None (occurrence: None)
  Receive Date: 20110519
  Receipt Date: 20110426
  Transmission Date: 20111010
  Serious: Yes (Other)
  Sender: FDA-Public Use
  Company Number: US-BAYER-200942932NA

PATIENT
  Age: 18 Year
  Sex: Female
  Weight: 73 kg

DRUGS (4)
  1. YAZ [Suspect]
     Indication: MENSTRUATION IRREGULAR
     Dosage: UNK
     Dates: start: 20080801, end: 20090301
  2. CARAFATE [Concomitant]
     Route: 048
  3. ANAPROX DS [Concomitant]
     Indication: MUSCLE SPASMS
  4. YAZ [Suspect]
     Indication: DYSMENORRHOEA
     Route: 048
     Dates: start: 20080801, end: 20081201

REACTIONS (2)
  - CHOLESTEROSIS [None]
  - CHOLELITHIASIS [None]
